FAERS Safety Report 4892853-8 (Version None)
Quarter: 2006Q1

REPORT INFORMATION
  Report Type: 
  Country: None (occurrence: None)
  Receive Date: 20060126
  Receipt Date: 20060105
  Transmission Date: 20060701
  Serious: Yes (Death, Hospitalization)
  Sender: FDA-Public Use
  Company Number: IT-MERCK-0601ITA00001

PATIENT
  Age: 73 Year
  Sex: Male

DRUGS (14)
  1. ZOCOR [Suspect]
     Indication: MYOCARDIAL ISCHAEMIA
     Route: 048
     Dates: start: 20041001, end: 20051119
  2. CLARITHROMYCIN [Suspect]
     Indication: BRONCHITIS ACUTE
     Route: 048
     Dates: start: 20051104, end: 20051115
  3. AMIODARONE HYDROCHLORIDE [Suspect]
     Route: 048
     Dates: start: 20041001, end: 20051129
  4. ERYTHROPOIETIC FACTOR [Concomitant]
     Indication: NEPHROGENIC ANAEMIA
     Route: 058
     Dates: start: 20050828, end: 20051130
  5. CALCIUM CARBONATE [Concomitant]
     Route: 065
  6. ISOSORBIDE MONONITRATE [Concomitant]
     Route: 065
  7. MANIDIPINE HYDROCHLORIDE [Concomitant]
     Route: 065
  8. FUROSEMIDE [Concomitant]
     Route: 065
  9. ASPIRIN [Concomitant]
     Route: 065
  10. CLONIDINE [Concomitant]
     Route: 065
  11. INFLUENZA VIRUS VACCINE (UNSPECIFIED) [Concomitant]
     Indication: PROPHYLAXIS
     Route: 051
     Dates: start: 20051117
  12. FLURBIPROFEN [Concomitant]
     Indication: MYALGIA
     Route: 048
     Dates: start: 20051119, end: 20051120
  13. LERCANIDIPINE [Concomitant]
     Route: 065
  14. VITAMIN E [Concomitant]
     Route: 065

REACTIONS (12)
  - ABASIA [None]
  - ATRIAL FIBRILLATION [None]
  - BACK PAIN [None]
  - BRONCHITIS [None]
  - CARDIAC ARREST [None]
  - DRUG INTERACTION [None]
  - DYSPNOEA [None]
  - MYALGIA [None]
  - PERIPHERAL SENSORIMOTOR NEUROPATHY [None]
  - POLYNEUROPATHY [None]
  - RENAL FAILURE ACUTE [None]
  - RHABDOMYOLYSIS [None]
